FAERS Safety Report 13907319 (Version 1)
Quarter: 2017Q3

REPORT INFORMATION
  Report Type: Spontaneous
  Country: US (occurrence: US)
  Receive Date: 20170825
  Receipt Date: 20170825
  Transmission Date: 20171127
  Serious: No
  Sender: FDA-Public Use
  Company Number: US-ROCHE-1222744

PATIENT
  Sex: Male
  Weight: 45.85 kg

DRUGS (2)
  1. NUTROPIN AQ [Suspect]
     Active Substance: SOMATROPIN
     Route: 058
  2. NUTROPIN AQ [Suspect]
     Active Substance: SOMATROPIN
     Indication: DWARFISM
     Route: 058
     Dates: start: 201304

REACTIONS (5)
  - Injection site pain [Unknown]
  - Bone pain [Unknown]
  - Injection site erythema [Unknown]
  - Headache [Recovered/Resolved]
  - Headache [Unknown]
